FAERS Safety Report 6456488-8 (Version None)
Quarter: 2009Q4

REPORT INFORMATION
  Report Type: 
  Country: None (occurrence: None)
  Receive Date: 20091125
  Receipt Date: 20091119
  Transmission Date: 20100525
  Serious: Yes (Other)
  Sender: FDA-Public Use
  Company Number: FR-BRISTOL-MYERS SQUIBB COMPANY-14865679

PATIENT
  Age: 87 Year
  Sex: Male

DRUGS (10)
  1. COAPROVEL FILM-COATED TABS 300/12.5 MG [Suspect]
     Dates: start: 20081201
  2. METFORMIN HCL [Concomitant]
  3. JANUVIA [Concomitant]
  4. ICAZ [Concomitant]
  5. PLAVIX [Concomitant]
  6. TEMERIT [Concomitant]
  7. EUPRESSYL [Concomitant]
  8. BIPERIDYS [Concomitant]
  9. OMEPRAZOLE [Concomitant]
  10. NOVONORM [Concomitant]

REACTIONS (2)
  - BLINDNESS [None]
  - DIZZINESS [None]
